FAERS Safety Report 7574012 (Version 9)
Quarter: 2015Q2

REPORT INFORMATION
  Report Type: Spontaneous
  Country: US (occurrence: US)
  Receive Date: 20100907
  Receipt Date: 20150421
  Transmission Date: 20150821
  Serious: Yes (Disabling)
  Sender: FDA-Public Use
  Company Number: US-BAYER-201032562NA

PATIENT
  Age: 45 Year
  Sex: Female
  Weight: 73.47 kg

DRUGS (22)
  1. INDERAL [Concomitant]
     Active Substance: PROPRANOLOL HYDROCHLORIDE
  2. TRAMADOL [Concomitant]
     Active Substance: TRAMADOL
  3. BENTYL [Concomitant]
     Active Substance: DICYCLOMINE HYDROCHLORIDE
     Dosage: 20 MG, BID
     Route: 048
     Dates: start: 20081002
  4. IBUPROFEN. [Concomitant]
     Active Substance: IBUPROFEN
  5. MOTRIN [Concomitant]
     Active Substance: IBUPROFEN
     Indication: PAIN
     Dosage: 800 MG, PRN
     Route: 048
     Dates: start: 20081211
  6. SKELAXIN [Concomitant]
     Active Substance: METAXALONE
     Dosage: 800 MG, QID
     Route: 048
     Dates: start: 20081002
  7. BUPROPION SR [Concomitant]
     Active Substance: BUPROPION
     Dosage: 150 MG, QD
     Route: 048
     Dates: start: 20081002
  8. KLONOPIN [Concomitant]
     Active Substance: CLONAZEPAM
     Dosage: UNK
     Dates: start: 20081002
  9. LISINOPRIL. [Concomitant]
     Active Substance: LISINOPRIL
     Indication: HYPERTENSION
     Dosage: 5 MG, UNK
  10. ADIPEX-P [Concomitant]
     Active Substance: PHENTERMINE HYDROCHLORIDE
     Dosage: UNK
     Dates: start: 20081002
  11. PREMARIN [Concomitant]
     Active Substance: ESTROGENS, CONJUGATED
     Indication: UTERINE HAEMORRHAGE
     Dosage: UNK UNK, QD
     Dates: start: 20081201
  12. ZANTAC [Concomitant]
     Active Substance: RANITIDINE HYDROCHLORIDE
     Indication: CHEST DISCOMFORT
  13. RELAFEN [Concomitant]
     Active Substance: NABUMETONE
     Dosage: 750 MG, UNK
     Route: 048
     Dates: start: 20081211
  14. LORAZEPAM. [Concomitant]
     Active Substance: LORAZEPAM
     Dosage: UNK
     Dates: start: 20081002
  15. ATIVAN [Concomitant]
     Active Substance: LORAZEPAM
     Dosage: 0.5 MG, TID
     Dates: start: 20081211
  16. EXCEDRIN ASPIRIN FREE [Concomitant]
  17. YAZ [Suspect]
     Active Substance: DROSPIRENONE\ETHINYL ESTRADIOL
     Dosage: 3 SAMPLES RECEIVED IN AUG 2008
     Route: 048
     Dates: start: 20080822, end: 20081217
  18. MIDRIN [Concomitant]
     Active Substance: ACETAMINOPHEN\DICHLORALPHENAZONE\ISOMETHEPTENE
  19. LORTAB [Concomitant]
     Active Substance: ACETAMINOPHEN\HYDROCODONE BITARTRATE
     Dosage: UNK
     Dates: start: 20081202
  20. ULTRAM [Concomitant]
     Active Substance: TRAMADOL HYDROCHLORIDE
     Dosage: 50 MG, TID
     Dates: start: 20081002
  21. ASA [Concomitant]
     Active Substance: ASPIRIN
     Dosage: UNK UNK, QD
     Dates: start: 20081002
  22. NAPROSYN [Concomitant]
     Active Substance: NAPROXEN

REACTIONS (14)
  - Aphasia [Not Recovered/Not Resolved]
  - Depression [None]
  - Speech disorder [Not Recovered/Not Resolved]
  - Mental disorder [None]
  - Disturbance in attention [Not Recovered/Not Resolved]
  - Anxiety [None]
  - Memory impairment [Not Recovered/Not Resolved]
  - Confusional state [Not Recovered/Not Resolved]
  - Amnesia [Not Recovered/Not Resolved]
  - Cognitive disorder [Not Recovered/Not Resolved]
  - Cerebrovascular accident [Not Recovered/Not Resolved]
  - Activities of daily living impaired [Not Recovered/Not Resolved]
  - Fear [Not Recovered/Not Resolved]
  - Anhedonia [None]

NARRATIVE: CASE EVENT DATE: 20081215
